FAERS Safety Report 8583128 (Version 2)
Quarter: 2013Q1

REPORT INFORMATION
  Report Type: Spontaneous
  Country: JP (occurrence: JP)
  Receive Date: 20120529
  Receipt Date: 20130121
  Transmission Date: 20140127
  Serious: Yes (Hospitalization)
  Sender: FDA-Public Use
  Company Number: JP-SANOFI-AVENTIS-2012SA037371

PATIENT
  Age: 62 Year
  Sex: Male
  Weight: 55 kg

DRUGS (18)
  1. ELPLAT [Suspect]
     Indication: COLON CANCER
     Route: 041
     Dates: start: 20120116, end: 20120116
  2. ELPLAT [Suspect]
     Indication: COLON CANCER
     Route: 041
     Dates: start: 20120131, end: 20120131
  3. CALCIUM LEVOFOLINATE [Concomitant]
     Dates: start: 20120116, end: 20120131
  4. 5-FU [Concomitant]
     Dates: start: 20120116, end: 20120116
  5. ERBITUX [Concomitant]
     Dates: start: 20120131, end: 20120131
  6. POLARAMINE [Concomitant]
     Dates: start: 20120116, end: 20120131
  7. GRANISETRON [Concomitant]
     Dates: start: 20120116, end: 20120131
  8. DEXAMETHASONE SODIUM PHOSPHATE [Concomitant]
     Dates: start: 20120116, end: 20120131
  9. MAGNESIUM SULFATE [Concomitant]
     Dates: start: 20120116, end: 20120116
  10. CALCICOL [Concomitant]
     Dates: start: 20120116, end: 20120116
  11. INTRALIPOS [Concomitant]
     Dates: start: 20120108, end: 20120131
  12. AMARYL [Concomitant]
  13. JANUVIA [Concomitant]
  14. AMLODIPINE BESILATE [Concomitant]
  15. MIYA-BM [Concomitant]
     Dates: start: 20120117, end: 20121008
  16. ELECTROLYTE SOLUTIONS [Concomitant]
     Dates: start: 20120108, end: 20120214
  17. SODIUM CHLORIDE [Concomitant]
     Dates: start: 20120108, end: 20120214
  18. HUMULIN R [Concomitant]
     Dates: start: 20120108, end: 20120214

REACTIONS (1)
  - Mental disorder [Recovered/Resolved]
